FAERS Safety Report 4406231-9 (Version None)
Quarter: 2004Q3

REPORT INFORMATION
  Report Type: 
  Country: None (occurrence: None)
  Receive Date: 20040723
  Receipt Date: 20000411
  Transmission Date: 20050211
  Serious: No
  Sender: FDA-Public Use
  Company Number: US-GLAXOSMITHKLINE-A0325919A

PATIENT
  Sex: Female
  Weight: 80.9 kg

DRUGS (2)
  1. AVANDIA [Suspect]
     Dosage: 4MG PER DAY
     Route: 048
     Dates: end: 20000526
  2. METFORMIN HCL [Concomitant]

REACTIONS (6)
  - ABDOMINAL DISTENSION [None]
  - CONSTIPATION [None]
  - FATIGUE [None]
  - FLUID RETENTION [None]
  - WEIGHT INCREASED [None]
  - WEIGHT LOSS POOR [None]
